FAERS Safety Report 5367438-X (Version None)
Quarter: 2007Q2

REPORT INFORMATION
  Report Type: 
  Country: None (occurrence: None)
  Receive Date: 20070622
  Receipt Date: 20061103
  Transmission Date: 20071010
  Serious: No
  Sender: FDA-Public Use
  Company Number: US-ASTRAZENECA-2006UW16539

PATIENT
  Age: 1 Year
  Sex: Female
  Weight: 8.6 kg

DRUGS (2)
  1. PULMICORT RESPULES [Suspect]
     Indication: BRONCHOSPASM
     Route: 055
  2. XOPENEX [Concomitant]
     Dosage: 2 CC NEBULIZER
     Route: 045
     Dates: start: 20060814, end: 20060819

REACTIONS (2)
  - COUGH [None]
  - RALES [None]
